APPROVED DRUG PRODUCT: TEMOZOLOMIDE
Active Ingredient: TEMOZOLOMIDE
Strength: 5MG
Dosage Form/Route: CAPSULE;ORAL
Application: A203490 | Product #001
Applicant: ANI PHARMACEUTICALS INC
Approved: Jul 13, 2016 | RLD: No | RS: No | Type: DISCN